FAERS Safety Report 9553788 (Version 1)
Quarter: 2013Q3

REPORT INFORMATION
  Report Type: Spontaneous
  Country: US (occurrence: US)
  Receive Date: 20130925
  Receipt Date: 20130925
  Transmission Date: 20140515
  Serious: Yes (Other)
  Sender: FDA-Public Use
  Company Number: US-FRI-1000049024

PATIENT
  Age: 54 Year
  Sex: Male

DRUGS (4)
  1. LINZESS [Suspect]
     Indication: CONSTIPATION
     Dosage: 290 MCG
     Route: 048
     Dates: start: 20130913
  2. ANDROGEL [Concomitant]
     Indication: HYPOGONADISM MALE
     Dosage: TOPICAL
     Route: 061
  3. POTASSIUM CHLORIDE [Concomitant]
  4. ATENOLOL [Concomitant]
     Indication: HYPERTENSION
     Dosage: 50-25 MG

REACTIONS (1)
  - Haematochezia [Not Recovered/Not Resolved]
